FAERS Safety Report 22153981 (Version 2)
Quarter: 2023Q2

REPORT INFORMATION
  Report Type: Spontaneous
  Country: DE (occurrence: None)
  Receive Date: 20230330
  Receipt Date: 20230504
  Transmission Date: 20230721
  Serious: Yes (Other)
  Sender: FDA-Public Use
  Company Number: DE-Merck Healthcare KGaA-9392152

PATIENT
  Sex: Female

DRUGS (1)
  1. REBIF [Suspect]
     Active Substance: INTERFERON BETA-1A
     Indication: Product used for unknown indication
     Dosage: REBIF 44 (UNIT NOT REPORTED) FOR THE PAST 10 YEARS (AS OF 24 MAR 2023).

REACTIONS (1)
  - Breast cancer female [Not Recovered/Not Resolved]
